FAERS Safety Report 25329847 (Version 1)
Quarter: 2025Q2

REPORT INFORMATION
  Report Type: Other
  Country: FR (occurrence: FR)
  Receive Date: 20250519
  Receipt Date: 20250519
  Transmission Date: 20250716
  Serious: Yes (Hospitalization, Congenital Anomaly)
  Sender: ZYDUS PHARM
  Company Number: None

PATIENT

DRUGS (1)
  1. GABAPENTIN [Suspect]
     Active Substance: GABAPENTIN
     Indication: Guillain-Barre syndrome
     Route: 064
     Dates: start: 2022

REACTIONS (2)
  - Brachydactyly [Recovered/Resolved with Sequelae]
  - Premature baby [Recovered/Resolved]

NARRATIVE: CASE EVENT DATE: 20230726
